FAERS Safety Report 5910708-4 (Version None)
Quarter: 2008Q4

REPORT INFORMATION
  Report Type: 
  Country: None (occurrence: None)
  Receive Date: 20081006
  Receipt Date: 20081006
  Transmission Date: 20090506
  Serious: Yes (Hospitalization)
  Sender: FDA-Public Use
  Company Number: None

PATIENT
  Age: 42 Year
  Sex: Female

DRUGS (14)
  1. EPZICOM [Suspect]
     Indication: HIV INFECTION
     Dosage: 1 TAB DAILY PO
     Route: 048
  2. SUSTIVA [Suspect]
     Indication: HIV INFECTION
     Dosage: 600 MG DAILY PO
     Route: 048
  3. QUINAPRIL [Concomitant]
  4. ZYRTEC [Concomitant]
  5. PREVACID [Concomitant]
  6. HYDROCHLOROTHIAZIDE [Concomitant]
  7. SPIRONOLACTONE [Concomitant]
  8. ASPIRIN [Concomitant]
  9. INSULATARD NPH HUMAN [Concomitant]
  10. GLYBURIDE [Concomitant]
  11. ACYCLOVIR SODIUM [Concomitant]
  12. ADVAIR DISKUS 100/50 [Concomitant]
  13. NEURONTIN [Concomitant]
  14. GLUCOVANCE [Concomitant]

REACTIONS (2)
  - ASTHMA [None]
  - LACTIC ACIDOSIS [None]
